FAERS Safety Report 6969898-7 (Version None)
Quarter: 2010Q3

REPORT INFORMATION
  Report Type: 
  Country: None (occurrence: None)
  Receive Date: 20100908
  Receipt Date: 20100830
  Transmission Date: 20110219
  Serious: Yes (Death, Hospitalization)
  Sender: FDA-Public Use
  Company Number: US-TEVA-246724USA

PATIENT
  Age: 52 Year
  Sex: Female

DRUGS (3)
  1. CEFUROXIME SODIUM INJECTION:750MG (BASE) 1.5G BASE [Suspect]
     Indication: LYME DISEASE
  2. DOXYCYCLINE [Suspect]
     Indication: LYME DISEASE
  3. TELITHROMYCIN [Suspect]
     Indication: LYME DISEASE

REACTIONS (1)
  - CLOSTRIDIAL INFECTION [None]
